FAERS Safety Report 12167929 (Version 1)
Quarter: 2016Q1

REPORT INFORMATION
  Report Type: Spontaneous
  Country: US (occurrence: None)
  Receive Date: 20160309
  Receipt Date: 20160309
  Transmission Date: 20160526
  Serious: Yes (Hospitalization)
  Sender: FDA-Public Use
  Company Number: None

PATIENT
  Age: 76 Year
  Sex: Female

DRUGS (27)
  1. BENICAR [Concomitant]
     Active Substance: OLMESARTAN MEDOXOMIL
  2. PREDNISONE. [Concomitant]
     Active Substance: PREDNISONE
  3. PROCRIT [Suspect]
     Active Substance: ERYTHROPOIETIN
     Indication: NEOPLASM MALIGNANT
     Route: 058
     Dates: start: 20141206
  4. AMITRIPTYLIN [Concomitant]
     Active Substance: AMITRIPTYLINE
  5. FLOVENT [Concomitant]
     Active Substance: FLUTICASONE PROPIONATE
  6. LASIX [Concomitant]
     Active Substance: FUROSEMIDE
  7. PRENATAL TAB VITAMINS [Concomitant]
  8. AZITHROMYCIN ANHYDROUS. [Concomitant]
     Active Substance: AZITHROMYCIN ANHYDROUS
  9. CHERRY LIQ [Concomitant]
  10. VITAMIN D2 [Concomitant]
     Active Substance: ERGOCALCIFEROL
  11. ACIDOPHILUS [Concomitant]
     Active Substance: LACTOBACILLUS ACIDOPHILUS
  12. ALBUTEROL NEB [Concomitant]
  13. ALLOPURINOL. [Concomitant]
     Active Substance: ALLOPURINOL
  14. CRANBERRY. [Concomitant]
     Active Substance: CRANBERRY
  15. LIPITOR [Concomitant]
     Active Substance: ATORVASTATIN CALCIUM
  16. NYSTATIN. [Concomitant]
     Active Substance: NYSTATIN
  17. PROCRIT [Concomitant]
     Active Substance: ERYTHROPOIETIN
  18. BOSULIF [Suspect]
     Active Substance: BOSUTINIB MONOHYDRATE
     Indication: NEOPLASM MALIGNANT
     Route: 048
     Dates: start: 20141206
  19. AMLODIPINE [Concomitant]
     Active Substance: AMLODIPINE BESYLATE
  20. ASPIRIN. [Concomitant]
     Active Substance: ASPIRIN
  21. LOSARTAN. [Concomitant]
     Active Substance: LOSARTAN
  22. MELATONIN [Concomitant]
     Active Substance: MELATONIN
  23. FLONASE [Concomitant]
     Active Substance: FLUTICASONE PROPIONATE
  24. TYLENOL [Concomitant]
     Active Substance: ACETAMINOPHEN
  25. IPRATROPIUM [Concomitant]
     Active Substance: IPRATROPIUM
  26. POTASSIUM [Concomitant]
     Active Substance: POTASSIUM
  27. XOPENEX [Concomitant]
     Active Substance: LEVALBUTEROL HYDROCHLORIDE

REACTIONS (6)
  - Arthralgia [None]
  - Pneumonia [None]
  - Fatigue [None]
  - Bronchitis [None]
  - Diarrhoea [None]
  - Nausea [None]

NARRATIVE: CASE EVENT DATE: 20160218
